FAERS Safety Report 14033076 (Version 2)
Quarter: 2017Q4

REPORT INFORMATION
  Report Type: Spontaneous
  Country: US (occurrence: US)
  Receive Date: 20171002
  Receipt Date: 20171102
  Transmission Date: 20180321
  Serious: Yes (Other)
  Sender: FDA-Public Use
  Company Number: US-GILEAD-2017-0295609

PATIENT
  Age: 50 Year
  Sex: Male
  Weight: 81.63 kg

DRUGS (2)
  1. ADVIL PM [Concomitant]
     Active Substance: DIPHENHYDRAMINE CITRATE\IBUPROFEN
  2. TRUVADA [Suspect]
     Active Substance: EMTRICITABINE\TENOFOVIR DISOPROXIL FUMARATE
     Indication: PROPHYLAXIS AGAINST HIV INFECTION
     Dosage: 200/30 UNK, QD
     Route: 048
     Dates: start: 201504, end: 201708

REACTIONS (5)
  - Gene mutation identification test positive [Unknown]
  - Acute HIV infection [Not Recovered/Not Resolved]
  - Product selection error [Unknown]
  - Drug resistance [Unknown]
  - Drug ineffective [Unknown]

NARRATIVE: CASE EVENT DATE: 201708
